FAERS Safety Report 22291258 (Version 3)
Quarter: 2024Q4

REPORT INFORMATION
  Report Type: Spontaneous
  Country: DE (occurrence: DE)
  Receive Date: 20230506
  Receipt Date: 20241011
  Transmission Date: 20250114
  Serious: Yes (Death, Life-Threatening, Hospitalization, Other)
  Sender: AUROBINDO
  Company Number: DE-ADIENNEP-2022AD000517

PATIENT
  Age: 11 Year
  Sex: Male

DRUGS (13)
  1. FLUDARABINE [Suspect]
     Active Substance: FLUDARABINE PHOSPHATE
     Indication: Allogenic stem cell transplantation
     Dosage: UNK
     Route: 065
  2. FLUDARABINE [Suspect]
     Active Substance: FLUDARABINE PHOSPHATE
     Indication: Prophylaxis against graft versus host disease
  3. IMATINIB [Suspect]
     Active Substance: IMATINIB
     Indication: Graft versus host disease
     Dosage: UNK
     Route: 065
  4. ALEMTUZUMAB [Suspect]
     Active Substance: ALEMTUZUMAB
     Indication: Prophylaxis against graft versus host disease
     Dosage: HE RECEIVED CONDITIONING REGIMEN WITH FLUDARABINE [FLUDARABIN], IV BUSULFAN 3 DAYS, ALEMTUZUMAB
     Route: 065
  5. ATG-FRESENIUS [Suspect]
     Active Substance: LAPINE T-LYMPHOCYTE IMMUNE GLOBULIN
     Indication: Allogenic stem cell transplantation
     Dosage: UNK
     Route: 065
  6. BUSULFAN [Suspect]
     Active Substance: BUSULFAN
     Indication: Prophylaxis against graft versus host disease
     Dosage: HE RECEIVED CONDITIONING REGIMEN WITH FLUDARABINE [FLUDARABIN], IV BUSULFAN 3 DAYS, ALEMTUZUMAB
     Route: 042
  7. BUDESONIDE [Suspect]
     Active Substance: BUDESONIDE
     Indication: Graft versus host disease
     Dosage: UNK
     Route: 065
  8. CYCLOSPORINE [Suspect]
     Active Substance: CYCLOSPORINE
     Indication: Prophylaxis against graft versus host disease
     Dosage: 80?100 MG/L (PHYLAXIS WITH CICLOSPORIN, MYCOPHENOLATE MOFETIL AND PREDNISONE FOR PREVENTION OF GVHD)
     Route: 065
  9. METHOTREXATE [Suspect]
     Active Substance: METHOTREXATE
     Indication: Graft versus host disease
     Dosage: UNK, PROPHYLAXIS WITH CICLOSPORIN [CYCLOSPORIN A], METHOTREXATE FOR PREVENTION OF GVHD.HE RECEIVED G
     Route: 065
  10. MYCOPHENOLATE MOFETIL [Suspect]
     Active Substance: MYCOPHENOLATE MOFETIL
     Indication: Prophylaxis against graft versus host disease
     Dosage: UNK
     Route: 065
  11. PREDNISONE [Suspect]
     Active Substance: PREDNISONE
     Indication: Prophylaxis against graft versus host disease
     Dosage: UNK
     Route: 065
  12. PREDNISOLONE [Suspect]
     Active Substance: PREDNISOLONE
     Indication: Graft versus host disease
     Dosage: 2.5 MILLIGRAM, ONCE A DAY (HE RECEIVED GVHD TREATMENT WITH CICLOSPORIN, PREDNISOLONE, METHYLPREDNISO
     Route: 065
  13. THIOTEPA [Suspect]
     Active Substance: THIOTEPA
     Indication: Allogenic stem cell transplantation
     Dosage: UNK
     Route: 065

REACTIONS (17)
  - Transplant failure [Fatal]
  - Bronchopulmonary aspergillosis [Fatal]
  - Aspergillus infection [Fatal]
  - BK virus infection [Fatal]
  - Adenovirus infection [Fatal]
  - Lactobacillus infection [Fatal]
  - Candida infection [Fatal]
  - Staphylococcal infection [Fatal]
  - Chronic graft versus host disease [Fatal]
  - Pulmonary haemorrhage [Fatal]
  - Coagulopathy [Fatal]
  - Drug ineffective [Unknown]
  - Chronic graft versus host disease in intestine [Unknown]
  - Chronic graft versus host disease in liver [Unknown]
  - Chronic graft versus host disease in skin [Unknown]
  - Acute graft versus host disease in intestine [Unknown]
  - Chronic graft versus host disease in lung [Unknown]
